FAERS Safety Report 6899267-X (Version None)
Quarter: 2010Q3

REPORT INFORMATION
  Report Type: 
  Country: None (occurrence: None)
  Receive Date: 20100802
  Receipt Date: 20080313
  Transmission Date: 20110219
  Serious: No
  Sender: FDA-Public Use
  Company Number: US-PFIZER INC-2007097506

PATIENT
  Sex: Female
  Weight: 65.8 kg

DRUGS (3)
  1. LYRICA [Suspect]
     Indication: PAIN
     Route: 048
     Dates: start: 20070418
  2. VITAMIN D [Concomitant]
  3. SYNTHROID [Concomitant]

REACTIONS (3)
  - FATIGUE [None]
  - ONYCHOCLASIS [None]
  - SOMNOLENCE [None]
